FAERS Safety Report 6526184-7 (Version None)
Quarter: 2010Q1

REPORT INFORMATION
  Report Type: 
  Country: None (occurrence: None)
  Receive Date: 20100104
  Receipt Date: 20091218
  Transmission Date: 20100710
  Serious: Yes (Other)
  Sender: FDA-Public Use
  Company Number: CA-GENENTECH-296413

PATIENT
  Sex: Male
  Weight: 95 kg

DRUGS (7)
  1. XOLAIR [Suspect]
     Indication: ASTHMA
     Dosage: 375 MG, 1/MONTH
     Route: 058
     Dates: start: 20070927
  2. XOLAIR [Suspect]
     Dosage: UNK
     Dates: start: 20091218
  3. PREDNISONE [Concomitant]
     Indication: DRUG USE FOR UNKNOWN INDICATION
     Dosage: 7.5 MG, Q2D
  4. PREDNISONE [Concomitant]
     Dosage: 50 MG, UNK
  5. PREDNISONE [Concomitant]
     Dosage: 25 MG, UNK
  6. PREDNISONE [Concomitant]
     Dosage: 10 MG, UNK
  7. PREDNISONE [Concomitant]
     Dosage: 5 MG, UNK

REACTIONS (1)
  - INFLUENZA [None]
